FAERS Safety Report 15819336 (Version 2)
Quarter: 2019Q1

REPORT INFORMATION
  Report Type: Spontaneous
  Country: CN (occurrence: CN)
  Receive Date: 20190114
  Receipt Date: 20190119
  Transmission Date: 20190417
  Serious: Yes (Hospitalization, Other)
  Sender: FDA-Public Use
  Company Number: CN-ASTELLAS-2019US001165

PATIENT
  Age: 50 Year
  Sex: Male

DRUGS (2)
  1. PROGRAF [Suspect]
     Active Substance: TACROLIMUS\TACROLIMUS ANHYDROUS
     Indication: RENAL TRANSPLANT
     Route: 048
  2. PREDNISONE ACETATE [Concomitant]
     Active Substance: PREDNISONE ACETATE
     Indication: RENAL TRANSPLANT
     Dosage: UNK UNK, UNKNOWN FREQ.
     Route: 065

REACTIONS (13)
  - Arteriosclerosis [Unknown]
  - Hepatitis B surface antibody positive [Recovered/Resolved]
  - Cholelithiasis [Unknown]
  - Renal cyst [Unknown]
  - Focal segmental glomerulosclerosis [Unknown]
  - Ascites [Unknown]
  - End stage renal disease [Unknown]
  - Atelectasis [Unknown]
  - Chronic hepatitis C [Recovering/Resolving]
  - Hepatic cyst [Unknown]
  - Renal atrophy [Unknown]
  - Pleural effusion [Unknown]
  - Pericardial effusion [Unknown]

NARRATIVE: CASE EVENT DATE: 201611
